FAERS Safety Report 9644814 (Version 1)
Quarter: 2013Q4

REPORT INFORMATION
  Report Type: Spontaneous
  Country: US (occurrence: None)
  Receive Date: 20131023
  Receipt Date: 20131023
  Transmission Date: 20140711
  Serious: Yes (Life-Threatening)
  Sender: FDA-Public Use
  Company Number: None

PATIENT
  Age: 54 Year
  Sex: Female
  Weight: 88.4 kg

DRUGS (1)
  1. RITUXAN [Suspect]
     Indication: NON-HODGKIN^S LYMPHOMA
     Dosage: 760MG ONCE DAILY INTO A VEIN
     Dates: start: 20110331, end: 20121210

REACTIONS (9)
  - Feeling hot [None]
  - Infusion related reaction [None]
  - Nausea [None]
  - Loss of consciousness [None]
  - Eye movement disorder [None]
  - Pulse absent [None]
  - Blood pressure immeasurable [None]
  - Cell death [None]
  - Obstruction [None]
